FAERS Safety Report 15786786 (Version 3)
Quarter: 2019Q1

REPORT INFORMATION
  Report Type: Report from Study
  Country: US (occurrence: US)
  Receive Date: 20190103
  Receipt Date: 20190123
  Transmission Date: 20190417
  Serious: Yes (Other)
  Sender: FDA-Public Use
  Company Number: US-JAZZ-2018-US-016737

PATIENT
  Age: 62 Year
  Sex: Female

DRUGS (20)
  1. FOLIC ACID. [Concomitant]
     Active Substance: FOLIC ACID
  2. HYOSCYAMINE. [Concomitant]
     Active Substance: HYOSCYAMINE
  3. SYNTHROID [Concomitant]
     Active Substance: LEVOTHYROXINE SODIUM
  4. REFRESH OPTIVE [Concomitant]
     Active Substance: CARBOXYMETHYLCELLULOSE SODIUM\GLYCERIN
  5. TYLENOL ARTHRITIS PAIN [Concomitant]
     Active Substance: ACETAMINOPHEN
  6. PROGESTERONE. [Concomitant]
     Active Substance: PROGESTERONE
  7. ADDERALL [Concomitant]
     Active Substance: AMPHETAMINE ASPARTATE\AMPHETAMINE SULFATE\DEXTROAMPHETAMINE SACCHARATE\DEXTROAMPHETAMINE SULFATE
  8. DEXILANT [Concomitant]
     Active Substance: DEXLANSOPRAZOLE
  9. SOMA [Concomitant]
     Active Substance: CARISOPRODOL
  10. SPIRONOLACTONE. [Concomitant]
     Active Substance: SPIRONOLACTONE
  11. TOPAMAX [Concomitant]
     Active Substance: TOPIRAMATE
  12. ATENOLOL. [Concomitant]
     Active Substance: ATENOLOL
  13. LEXAPRO [Concomitant]
     Active Substance: ESCITALOPRAM OXALATE
  14. PREDNISOLONE. [Concomitant]
     Active Substance: PREDNISOLONE
  15. VALIUM [Concomitant]
     Active Substance: DIAZEPAM
  16. XANAX [Concomitant]
     Active Substance: ALPRAZOLAM
  17. XYREM [Suspect]
     Active Substance: SODIUM OXYBATE
     Indication: HYPERSOMNIA
     Dosage: 2.25 G, BID
     Route: 048
     Dates: start: 201811, end: 201811
  18. XYREM [Suspect]
     Active Substance: SODIUM OXYBATE
     Dosage: 3.5 G, BID
     Route: 048
     Dates: start: 201811
  19. AMBIEN CR [Concomitant]
     Active Substance: ZOLPIDEM TARTRATE
  20. ZYRTEC [Concomitant]
     Active Substance: CETIRIZINE HYDROCHLORIDE

REACTIONS (16)
  - Dry skin [Unknown]
  - Dry eye [Unknown]
  - Irritable bowel syndrome [Not Recovered/Not Resolved]
  - Disturbance in attention [Unknown]
  - Diarrhoea [Unknown]
  - Drug ineffective [Unknown]
  - Palpitations [Not Recovered/Not Resolved]
  - Pain [Not Recovered/Not Resolved]
  - Periorbital swelling [Unknown]
  - Rash [Unknown]
  - Fatigue [Unknown]
  - Sinus disorder [Unknown]
  - Arthralgia [Not Recovered/Not Resolved]
  - Pharyngitis streptococcal [Unknown]
  - Gastrooesophageal reflux disease [Not Recovered/Not Resolved]
  - Ocular hyperaemia [Unknown]

NARRATIVE: CASE EVENT DATE: 201811
